FAERS Safety Report 17904731 (Version 1)
Quarter: 2020Q2

REPORT INFORMATION
  Report Type: Spontaneous
  Country: US (occurrence: US)
  Receive Date: 20200616
  Receipt Date: 20200616
  Transmission Date: 20200714
  Serious: Yes (Other)
  Sender: FDA-Public Use
  Company Number: None

PATIENT
  Sex: Male

DRUGS (2)
  1. GABAPENTIN 100 MG [Suspect]
     Active Substance: GABAPENTIN
  2. GABAPENTIN 300 MG [Suspect]
     Active Substance: GABAPENTIN

REACTIONS (2)
  - Drug ineffective [None]
  - Somnolence [None]
